FAERS Safety Report 17900433 (Version 1)
Quarter: 2020Q2

REPORT INFORMATION
  Report Type: Spontaneous
  Country: US (occurrence: US)
  Receive Date: 20200616
  Receipt Date: 20200616
  Transmission Date: 20200714
  Serious: Yes (Other)
  Sender: FDA-Public Use
  Company Number: US-AXELLIA-003200

PATIENT
  Age: 64 Year
  Sex: Male

DRUGS (3)
  1. TOBRAMYCIN. [Concomitant]
     Active Substance: TOBRAMYCIN
     Indication: ARTHRITIS INFECTIVE
     Dosage: CEMENT SPACER/BEADS IMPREGNATED
  2. ENOXAPARIN [Concomitant]
     Active Substance: ENOXAPARIN
  3. VANCOMYCIN [Suspect]
     Active Substance: VANCOMYCIN
     Indication: ARTHRITIS INFECTIVE
     Dosage: CEMENT SPACER/BEADS IMPREGNATED
     Route: 042

REACTIONS (1)
  - Immune thrombocytopenia [Recovering/Resolving]
